FAERS Safety Report 5993900-2 (Version None)
Quarter: 2008Q4

REPORT INFORMATION
  Report Type: 
  Country: None (occurrence: None)
  Receive Date: 20081212
  Receipt Date: 20081126
  Transmission Date: 20090506
  Serious: Yes (Hospitalization)
  Sender: FDA-Public Use
  Company Number: JP-EISAI MEDICAL RESEARCH-E0800-00016-SOL-JP

PATIENT
  Sex: Male

DRUGS (3)
  1. SALAGEN [Suspect]
     Indication: DRY MOUTH
     Route: 048
     Dates: start: 20080108, end: 20080129
  2. SALAGEN [Suspect]
     Route: 048
     Dates: start: 20080130, end: 20080304
  3. LANSOPRAZOLE [Suspect]
     Indication: GASTRIC ULCER
     Route: 048
     Dates: start: 20080226, end: 20080304

REACTIONS (1)
  - PANCYTOPENIA [None]
